FAERS Safety Report 21531656 (Version 1)
Quarter: 2022Q4

REPORT INFORMATION
  Report Type: Spontaneous
  Country: US (occurrence: None)
  Receive Date: 20221028
  Receipt Date: 20221028
  Transmission Date: 20230112
  Serious: No
  Sender: FDA-Public Use
  Company Number: None

PATIENT
  Age: 76 Year
  Sex: Male
  Weight: 79 kg

DRUGS (1)
  1. IRON DEXTRAN [Suspect]
     Active Substance: IRON DEXTRAN
     Indication: Iron deficiency anaemia
     Dosage: 25 MG  ONCE IV?
     Route: 042
     Dates: start: 20220426, end: 20220426

REACTIONS (4)
  - Dizziness [None]
  - Nausea [None]
  - Vomiting [None]
  - Angina pectoris [None]

NARRATIVE: CASE EVENT DATE: 20220426
